FAERS Safety Report 5637224-1 (Version None)
Quarter: 2008Q1

REPORT INFORMATION
  Report Type: 
  Country: None (occurrence: None)
  Receive Date: 20080225
  Receipt Date: 20070910
  Transmission Date: 20080703
  Serious: No
  Sender: FDA-Public Use
  Company Number: US-BRISTOL-MYERS SQUIBB COMPANY-13205000

PATIENT
  Age: 17 Year
  Sex: Female
  Weight: 45 kg

DRUGS (4)
  1. KENALOG [Suspect]
     Indication: MONARTHRITIS
     Dates: start: 20041115, end: 20050210
  2. CEFZIL [Concomitant]
  3. PROMETHAZINE [Concomitant]
  4. VIRAVAN-S [Concomitant]

REACTIONS (1)
  - INJECTION SITE REACTION [None]
